FAERS Safety Report 9164729 (Version 1)
Quarter: 2013Q1

REPORT INFORMATION
  Report Type: Spontaneous
  Country: FR (occurrence: FR)
  Receive Date: 20130315
  Receipt Date: 20130315
  Transmission Date: 20140127
  Serious: Yes (Hospitalization, Other)
  Sender: FDA-Public Use
  Company Number: FR-PFIZER INC-2013086306

PATIENT
  Age: 73 Year
  Sex: Male

DRUGS (8)
  1. CORDARONE [Suspect]
     Indication: ATRIAL FIBRILLATION
     Dosage: 200 MG, 1X/DAY
     Route: 048
     Dates: end: 20130206
  2. PREVISCAN [Concomitant]
     Dosage: UNK
  3. LASILIX [Concomitant]
     Dosage: UNK
  4. XELODA [Concomitant]
     Indication: NEOPLASM
     Dosage: UNK
     Dates: start: 201212
  5. ERBITUX [Concomitant]
     Indication: NEOPLASM
     Dosage: UNK
     Dates: end: 201301
  6. BISOCE [Concomitant]
     Dosage: UNK
  7. COVERSYL [Concomitant]
     Dosage: UNK
  8. INEGY [Concomitant]
     Dosage: UNK

REACTIONS (3)
  - Hepatitis acute [Recovering/Resolving]
  - Encephalopathy [Unknown]
  - Brain natriuretic peptide increased [Unknown]
